FAERS Safety Report 18671722 (Version 1)
Quarter: 2020Q4

REPORT INFORMATION
  Report Type: Spontaneous
  Country: US (occurrence: US)
  Receive Date: 20201229
  Receipt Date: 20201229
  Transmission Date: 20210114
  Serious: No
  Sender: FDA-Public Use
  Company Number: US-STRIDES ARCOLAB LIMITED-2020SP014220

PATIENT
  Age: 60 Year
  Sex: Female

DRUGS (12)
  1. PREDNISOLONE. [Suspect]
     Active Substance: PREDNISOLONE
     Indication: INFLUENZA
     Dosage: 40 MILLIGRAM PER DAY
     Route: 048
     Dates: start: 20200404, end: 20200409
  2. LEVOFLOXACIN. [Concomitant]
     Active Substance: LEVOFLOXACIN
     Indication: INFLUENZA
     Dosage: 750 MILLIGRAM PER DAY
     Route: 042
     Dates: start: 20200404, end: 20200406
  3. VANCOMYCIN [Concomitant]
     Active Substance: VANCOMYCIN
     Indication: COVID-19
  4. HYDROXYCHLOROQUINE [Concomitant]
     Active Substance: HYDROXYCHLOROQUINE
     Indication: INFLUENZA
     Dosage: 200 MILLIGRAM, BID
     Route: 048
     Dates: start: 20200406, end: 20200409
  5. PREDNISOLONE. [Suspect]
     Active Substance: PREDNISOLONE
     Indication: COVID-19
  6. METHYLPREDNISOLONE. [Concomitant]
     Active Substance: METHYLPREDNISOLONE
     Indication: INFLUENZA
     Dosage: 60 MILLIGRAM, SINGLE
     Route: 042
     Dates: start: 20200404, end: 20200404
  7. METHYLPREDNISOLONE. [Concomitant]
     Active Substance: METHYLPREDNISOLONE
     Indication: COVID-19
  8. OSELTAMIVIR [Suspect]
     Active Substance: OSELTAMIVIR
     Indication: INFLUENZA
     Dosage: 75 MILLIGRAM, BID
     Route: 048
     Dates: start: 20200404, end: 20200409
  9. OSELTAMIVIR [Suspect]
     Active Substance: OSELTAMIVIR
     Indication: COVID-19
  10. LEVOFLOXACIN. [Concomitant]
     Active Substance: LEVOFLOXACIN
     Indication: COVID-19
  11. HYDROXYCHLOROQUINE [Concomitant]
     Active Substance: HYDROXYCHLOROQUINE
     Indication: COVID-19
     Dosage: 400 MILLIGRAM, BID
     Route: 048
     Dates: start: 20200404, end: 20200405
  12. VANCOMYCIN [Concomitant]
     Active Substance: VANCOMYCIN
     Indication: INFLUENZA
     Dosage: 1.25 GRAM, BID
     Route: 042
     Dates: start: 20200404, end: 20200406

REACTIONS (1)
  - Off label use [Unknown]
